FAERS Safety Report 16955610 (Version 2)
Quarter: 2019Q4

REPORT INFORMATION
  Report Type: Spontaneous
  Country: US (occurrence: US)
  Receive Date: 20191024
  Receipt Date: 20191120
  Transmission Date: 20200122
  Serious: No
  Sender: FDA-Public Use
  Company Number: US-PFIZER INC-2019456784

PATIENT
  Age: 68 Year
  Sex: Female
  Weight: 101.9 kg

DRUGS (2)
  1. ROCURONIUM BROMIDE. [Suspect]
     Active Substance: ROCURONIUM BROMIDE
     Dosage: 155 MG, DAILY
     Route: 042
     Dates: start: 20191014, end: 20191014
  2. ROCURONIUM BROMIDE. [Suspect]
     Active Substance: ROCURONIUM BROMIDE
     Indication: ANAESTHESIA PROCEDURE
     Dosage: 155 MG, DAILY (50MG AT 07:30, 50MG AT 08:30, 20MG AT 09:00, 15MG AT 09:30, AND 20MG AT 11:00)
     Route: 042
     Dates: start: 20191014, end: 20191014

REACTIONS (2)
  - Drug ineffective [Unknown]
  - Product quality issue [Unknown]

NARRATIVE: CASE EVENT DATE: 20191014
